FAERS Safety Report 21045638 (Version 1)
Quarter: 2022Q3

REPORT INFORMATION
  Report Type: Spontaneous
  Country: US (occurrence: US)
  Receive Date: 20220706
  Receipt Date: 20220706
  Transmission Date: 20221027
  Serious: No
  Sender: FDA-Public Use
  Company Number: ENDG21-07572

PATIENT
  Age: 91 Year
  Sex: Female

DRUGS (4)
  1. CALCITONIN SALMON [Suspect]
     Active Substance: CALCITONIN SALMON
     Indication: Osteoporosis
     Dosage: 1 DF, DAILY (ONE SPRAY IN ALTERNATE NOSTRILS EVERYDAY)
     Route: 045
     Dates: start: 2019
  2. CALCITONIN SALMON [Suspect]
     Active Substance: CALCITONIN SALMON
     Dosage: 1 DF, DAILY (ONE SPRAY IN ALTERNATE NOSTRILS EVERYDAY)
     Route: 045
  3. CALCITONIN SALMON [Suspect]
     Active Substance: CALCITONIN SALMON
     Dosage: 1 DF, DAILY (ONE SPRAY IN ALTERNATE NOSTRILS EVERYDAY)
     Route: 045
  4. UNSPECIFIED INGREDIENT [Concomitant]
     Active Substance: UNSPECIFIED INGREDIENT
     Indication: Product used for unknown indication
     Dosage: UNK UNKNOWN, UNKNOWN
     Route: 065

REACTIONS (2)
  - Macular degeneration [Not Recovered/Not Resolved]
  - Product packaging quantity issue [Unknown]

NARRATIVE: CASE EVENT DATE: 20211101
